FAERS Safety Report 9193921 (Version 2)
Quarter: 2013Q2

REPORT INFORMATION
  Report Type: Report from Study
  Country: JP (occurrence: JP)
  Receive Date: 20130327
  Receipt Date: 20130501
  Transmission Date: 20140414
  Serious: Yes (Other)
  Sender: FDA-Public Use
  Company Number: JP-ROCHE-1206236

PATIENT
  Sex: 0

DRUGS (5)
  1. BEVACIZUMAB [Suspect]
     Indication: COLORECTAL CANCER
     Route: 065
  2. OXALIPLATIN [Suspect]
     Indication: COLORECTAL CANCER
     Route: 065
  3. CALCIUM FOLINATE [Suspect]
     Indication: COLORECTAL CANCER
     Dosage: DAY 1
     Route: 065
  4. FLUOROURACIL [Suspect]
     Indication: COLORECTAL CANCER
     Dosage: BOLUS
     Route: 065
  5. FLUOROURACIL [Suspect]
     Dosage: 46-HOURS
     Route: 065

REACTIONS (9)
  - Aspartate aminotransferase increased [Unknown]
  - Mucosal inflammation [Unknown]
  - Leukopenia [Unknown]
  - Neutropenia [Unknown]
  - Febrile neutropenia [Unknown]
  - Fatigue [Unknown]
  - Decreased appetite [Unknown]
  - Diarrhoea [Unknown]
  - Ileus [Unknown]
